FAERS Safety Report 6309706-0 (Version None)
Quarter: 2009Q3

REPORT INFORMATION
  Report Type: 
  Country: None (occurrence: None)
  Receive Date: 20090814
  Receipt Date: 20090804
  Transmission Date: 20100115
  Serious: Yes (Hospitalization)
  Sender: FDA-Public Use
  Company Number: PHHY2008MX16905

PATIENT
  Sex: Female

DRUGS (4)
  1. DIOVAN HCT [Suspect]
     Indication: HYPERTENSION
     Dosage: 160/25 MG, QD
     Route: 048
     Dates: start: 20070501, end: 20080702
  2. DIOVAN HCT [Suspect]
     Dosage: 160/25 MG PER DAY
     Dates: start: 20080718, end: 20080801
  3. DIOVAN HCT [Suspect]
     Dosage: HALF TABLET (160/25 MG) PER DAY
     Dates: start: 20080801
  4. ALDOMET [Concomitant]
     Dosage: UNK
     Dates: start: 20080702, end: 20080718

REACTIONS (3)
  - DRUG EXPOSURE DURING PREGNANCY [None]
  - HYPOTENSION [None]
  - IMMINENT ABORTION [None]
